FAERS Safety Report 17185815 (Version 2)
Quarter: 2019Q4

REPORT INFORMATION
  Report Type: Spontaneous
  Country: SE (occurrence: SE)
  Receive Date: 20191220
  Receipt Date: 20191226
  Transmission Date: 20200122
  Serious: Yes (Hospitalization)
  Sender: FDA-Public Use
  Company Number: SE-MYLANLABS-2019M1125653

PATIENT
  Age: 14 Year
  Sex: Female

DRUGS (2)
  1. CIRCADIN [Suspect]
     Active Substance: MELATONIN
     Indication: PRODUCT USED FOR UNKNOWN INDICATION
     Dosage: OK?ND DOS
     Dates: start: 20190108, end: 20190108
  2. LERGIGAN (PROMETHAZINE) [Suspect]
     Active Substance: PROMETHAZINE HYDROCHLORIDE
     Indication: PRODUCT USED FOR UNKNOWN INDICATION
     Dosage: ^6-7^
     Route: 048
     Dates: start: 20190108, end: 20190108

REACTIONS (4)
  - Intentional self-injury [Unknown]
  - Fatigue [Unknown]
  - Intentional overdose [Unknown]
  - Nausea [Unknown]

NARRATIVE: CASE EVENT DATE: 20190108
